FAERS Safety Report 21975614 (Version 1)
Quarter: 2023Q1

REPORT INFORMATION
  Report Type: Spontaneous
  Country: CZ (occurrence: CZ)
  Receive Date: 20230210
  Receipt Date: 20230210
  Transmission Date: 20230418
  Serious: Yes (Hospitalization)
  Sender: FDA-Public Use
  Company Number: CZ-TEVA-2023-CZ-2852659

PATIENT
  Age: 47 Year
  Sex: Female

DRUGS (4)
  1. IMATINIB [Suspect]
     Active Substance: IMATINIB
     Indication: Chronic myeloid leukaemia
     Dosage: 400 MILLIGRAM DAILY;
     Route: 065
     Dates: start: 200610
  2. IMATINIB [Suspect]
     Active Substance: IMATINIB
     Route: 065
     Dates: end: 200611
  3. DASATINIB [Suspect]
     Active Substance: DASATINIB
     Indication: Chronic myeloid leukaemia
     Dosage: 50 MILLIGRAM DAILY;
     Route: 065
     Dates: start: 200907, end: 200909
  4. DASATINIB [Suspect]
     Active Substance: DASATINIB
     Dosage: 100 MILLIGRAM DAILY;
     Route: 065
     Dates: start: 200909

REACTIONS (6)
  - Rash [Recovered/Resolved]
  - Hepatic enzyme increased [Recovered/Resolved]
  - Pleural effusion [Recovered/Resolved]
  - Pulmonary arterial hypertension [Recovered/Resolved]
  - Rash pruritic [Recovered/Resolved]
  - Rash maculo-papular [Recovered/Resolved]
